FAERS Safety Report 5787284-2 (Version None)
Quarter: 2008Q2

REPORT INFORMATION
  Report Type: 
  Country: None (occurrence: None)
  Receive Date: 20080618
  Receipt Date: 20080612
  Transmission Date: 20081010
  Serious: Yes (Congenital Anomaly)
  Sender: FDA-Public Use
  Company Number: 8020987

PATIENT
  Sex: Female
  Weight: 8.1 kg

DRUGS (3)
  1. KEPPRA [Suspect]
     Dosage: TRP
     Route: 064
     Dates: start: 20060203
  2. VITAMINS NOS [Concomitant]
  3. RHOGAM /00025301/ [Concomitant]

REACTIONS (2)
  - ACROCHORDON [None]
  - MATERNAL DRUGS AFFECTING FOETUS [None]
